FAERS Safety Report 16910209 (Version 6)
Quarter: 2021Q1

REPORT INFORMATION
  Report Type: Spontaneous
  Country: US (occurrence: US)
  Receive Date: 20191011
  Receipt Date: 20210104
  Transmission Date: 20210419
  Serious: Yes (Other)
  Sender: FDA-Public Use
  Company Number: US-PFIZER INC-2019410755

PATIENT
  Age: 52 Year
  Sex: Female
  Weight: 83.91 kg

DRUGS (2)
  1. FLECTOR [Suspect]
     Active Substance: DICLOFENAC EPOLAMINE
     Indication: PAIN
     Dosage: 2X/DAY (1 PATCH TWICE A DAY TO THE SHOULDER AND BACK )
     Route: 061
     Dates: start: 2007
  2. FLECTOR [Suspect]
     Active Substance: DICLOFENAC EPOLAMINE
     Indication: ROTATOR CUFF SYNDROME

REACTIONS (5)
  - Ear discomfort [Unknown]
  - Off label use [Unknown]
  - Incorrect dose administered [Unknown]
  - Drug dependence [Unknown]
  - Sinusitis [Unknown]

NARRATIVE: CASE EVENT DATE: 2007
